FAERS Safety Report 5592543-2 (Version None)
Quarter: 2008Q1

REPORT INFORMATION
  Report Type: 
  Country: None (occurrence: None)
  Receive Date: 20080111
  Receipt Date: 20080103
  Transmission Date: 20080703
  Serious: Yes (Congenital Anomaly)
  Sender: FDA-Public Use
  Company Number: B0501440A

PATIENT
  Sex: Male

DRUGS (2)
  1. LAMOTRIGINE [Suspect]
     Indication: PARTIAL SEIZURES
     Dosage: 500 MG / PER DAY / TRANSPLACENTARY
     Route: 064
  2. LEVETIRACETAM (FORMULATION UNKNOWN) (GENERIC) (LEVETIRACETAM) [Suspect]
     Indication: PARTIAL SEIZURES
     Dosage: 3000 MG / PER DAY / TRANSPLACENTARY
     Route: 064

REACTIONS (2)
  - DRUG EXPOSURE DURING PREGNANCY [None]
  - TALIPES [None]
